FAERS Safety Report 7745266-5 (Version None)
Quarter: 2011Q3

REPORT INFORMATION
  Report Type: 
  Country: None (occurrence: None)
  Receive Date: 20110913
  Receipt Date: 20110901
  Transmission Date: 20111222
  Serious: Yes (Life-Threatening, Hospitalization)
  Sender: FDA-Public Use
  Company Number: US-CELGENEUS-163-21880-11090249

PATIENT
  Sex: Male
  Weight: 89.5 kg

DRUGS (5)
  1. RITUXIMAB [Suspect]
     Route: 065
     Dates: end: 20110601
  2. BENDAMUSTINE [Suspect]
     Route: 065
     Dates: end: 20110601
  3. REVLIMID [Suspect]
     Dosage: 5 MILLIGRAM
     Route: 048
     Dates: start: 20110805, end: 20110826
  4. IMMUNE GLOBULIN INTRAVENOUS (HUMAN) [Concomitant]
     Indication: IDIOPATHIC THROMBOCYTOPENIC PURPURA
     Dosage: .5 MILLIGRAM/KILOGRAM
     Route: 041
  5. AZITHROMYCIN [Concomitant]
     Route: 065
     Dates: start: 20110801

REACTIONS (7)
  - PNEUMONIA [None]
  - SINUSITIS [None]
  - RESPIRATORY FAILURE [None]
  - THROMBOCYTOPENIA [None]
  - PYREXIA [None]
  - IDIOPATHIC THROMBOCYTOPENIC PURPURA [None]
  - BRONCHITIS [None]
